FAERS Safety Report 8231153-5 (Version None)
Quarter: 2012Q1

REPORT INFORMATION
  Report Type: 
  Country: None (occurrence: None)
  Receive Date: 20120320
  Receipt Date: 20120312
  Transmission Date: 20120608
  Serious: Yes (Other)
  Sender: FDA-Public Use
  Company Number: AUR-APL-2012-00770

PATIENT
  Age: 44 Year
  Sex: Female
  Weight: 70.3 kg

DRUGS (3)
  1. LISINOPRIL [Suspect]
     Indication: PRODUCT USED FOR UNKNOWN INDICATION
     Dosage: 10 MG (10 MG,1 IN 1 D),ORAL ; 20 MG IN THE MORNING AND 20 MG AT NIGHT (20 MG,2 IN 1 D),ORAL
     Route: 048
     Dates: start: 20061201, end: 20081201
  2. LISINOPRIL [Suspect]
     Indication: PRODUCT USED FOR UNKNOWN INDICATION
     Dosage: 10 MG (10 MG,1 IN 1 D),ORAL ; 20 MG IN THE MORNING AND 20 MG AT NIGHT (20 MG,2 IN 1 D),ORAL
     Route: 048
     Dates: start: 20060801, end: 20061201
  3. HUMALOG [Concomitant]

REACTIONS (5)
  - RENAL FAILURE [None]
  - ARTHROPATHY [None]
  - INJURY [None]
  - ANXIETY [None]
  - TREMOR [None]
